FAERS Safety Report 6774478-2 (Version None)
Quarter: 2010Q2

REPORT INFORMATION
  Report Type: 
  Country: None (occurrence: None)
  Receive Date: 20100617
  Receipt Date: 20100607
  Transmission Date: 20101027
  Serious: Yes (Other)
  Sender: FDA-Public Use
  Company Number: PHHY2010CA10047

PATIENT
  Sex: Male

DRUGS (7)
  1. EXJADE [Suspect]
     Indication: MYELODYSPLASTIC SYNDROME
     Dosage: 1500 MG, QD
     Route: 048
     Dates: start: 20091201
  2. EXJADE [Suspect]
     Dosage: 2000 MG, QD
     Route: 048
     Dates: start: 20091205
  3. BLOOD AND RELATED PRODUCTS [Concomitant]
     Dosage: 2 UNITS OF BLOOD EVERY 2 WEEKS
  4. BLOOD AND RELATED PRODUCTS [Concomitant]
     Dosage: 2 UNITS OF BLOOD ONCE A WEEK
  5. ASPIRIN [Concomitant]
     Dosage: 81 MG, PER DAY
     Route: 048
  6. METOPROLOL [Concomitant]
     Dosage: 1 DF, PER DAY
     Route: 048
  7. NITRO-SPRAY [Concomitant]

REACTIONS (5)
  - BLOOD IRON INCREASED [None]
  - DIARRHOEA [None]
  - MUSCLE SPASMS [None]
  - POLYURIA [None]
  - WEIGHT DECREASED [None]
